FAERS Safety Report 6355947-6 (Version None)
Quarter: 2009Q3

REPORT INFORMATION
  Report Type: 
  Country: None (occurrence: None)
  Receive Date: 20090915
  Receipt Date: 20090625
  Transmission Date: 20100115
  Serious: Yes (Death)
  Sender: FDA-Public Use
  Company Number: US-JNJFOC-20060906145

PATIENT
  Sex: Male

DRUGS (3)
  1. RISPERDAL [Suspect]
     Indication: ATTENTION DEFICIT/HYPERACTIVITY DISORDER
  2. RITALIN [Concomitant]
  3. STRATTERA [Concomitant]

REACTIONS (6)
  - BRAIN OEDEMA [None]
  - BREAST ENLARGEMENT [None]
  - DIABETES MELLITUS [None]
  - DIABETIC KETOACIDOSIS [None]
  - SOMNOLENCE [None]
  - WEIGHT INCREASED [None]
